FAERS Safety Report 23540624 (Version 2)
Quarter: 2024Q2

REPORT INFORMATION
  Report Type: Spontaneous
  Country: US (occurrence: US)
  Receive Date: 20240219
  Receipt Date: 20240517
  Transmission Date: 20240715
  Serious: No
  Sender: FDA-Public Use
  Company Number: US-Stemline Therapeutics, Inc.-2023ST004929

PATIENT
  Age: 81 Year
  Sex: Female

DRUGS (3)
  1. ORSERDU [Suspect]
     Active Substance: ELACESTRANT
     Indication: Product used for unknown indication
     Route: 048
     Dates: start: 20231110
  2. ORSERDU [Suspect]
     Active Substance: ELACESTRANT
     Route: 048
     Dates: start: 20231110
  3. NORCO [Suspect]
     Active Substance: ACETAMINOPHEN\HYDROCODONE BITARTRATE
     Indication: Product used for unknown indication
     Dosage: UNKNOWN

REACTIONS (14)
  - Renal disorder [Unknown]
  - Onychoclasis [Unknown]
  - Sleep disorder [Unknown]
  - Pain [Recovering/Resolving]
  - Fall [Unknown]
  - Sciatica [Unknown]
  - Sciatic nerve injury [Unknown]
  - Positron emission tomogram abnormal [Unknown]
  - Abdominal distension [Unknown]
  - Blood potassium decreased [Unknown]
  - Abdominal discomfort [Unknown]
  - Diarrhoea [Recovered/Resolved]
  - Decreased appetite [Unknown]
  - Faeces soft [Unknown]
